FAERS Safety Report 4829371-9 (Version None)
Quarter: 2005Q4

REPORT INFORMATION
  Report Type: 
  Country: None (occurrence: None)
  Receive Date: 20051028
  Receipt Date: 20050818
  Transmission Date: 20060501
  Serious: No
  Sender: FDA-Public Use
  Company Number: COT_0189_2005

PATIENT
  Age: 56 Year
  Sex: Female
  Weight: 119.296 kg

DRUGS (19)
  1. VENTAVIS [Suspect]
     Indication: PULMONARY HYPERTENSION
     Dosage: 5 MCG 6XD IH
     Route: 055
     Dates: start: 20050816
  2. VENTAVIS [Suspect]
     Indication: PULMONARY HYPERTENSION
     Dosage: 5 MCG 6XD IH
     Route: 055
     Dates: start: 20050816
  3. TRACLEER [Concomitant]
  4. PROCARDIA [Concomitant]
  5. DARVOCET-N 100 [Concomitant]
  6. OXYGEN [Concomitant]
  7. ALACTONE [Concomitant]
  8. KLOR-CON [Concomitant]
  9. AMINOPHYLLINE [Concomitant]
  10. QUININE [Concomitant]
  11. TYLENOL [Concomitant]
  12. FLOVENT [Concomitant]
  13. PHENYTOIN [Concomitant]
  14. ELAVIL [Concomitant]
  15. LANOXIN [Concomitant]
  16. COUMADIN [Concomitant]
  17. PRILOSEC [Concomitant]
  18. CELEBREX [Concomitant]
  19. ALBUTEROL [Concomitant]

REACTIONS (3)
  - CHEST DISCOMFORT [None]
  - EPISTAXIS [None]
  - NASAL DISCOMFORT [None]
